FAERS Safety Report 17355471 (Version 1)
Quarter: 2020Q1

REPORT INFORMATION
  Report Type: Spontaneous
  Country: SI (occurrence: SI)
  Receive Date: 20200131
  Receipt Date: 20200131
  Transmission Date: 20200409
  Serious: Yes (Other)
  Sender: FDA-Public Use
  Company Number: SI-PFIZER INC-2020040848

PATIENT
  Age: 71 Year
  Sex: Female

DRUGS (7)
  1. METOJECT [Concomitant]
     Active Substance: METHOTREXATE SODIUM
     Dosage: 50 MG/ML
  2. PLIVIT D3 [Concomitant]
     Active Substance: CHOLECALCIFEROL
     Dosage: UNK
     Route: 048
  3. NOLPAZA [Concomitant]
     Active Substance: PANTOPRAZOLE SODIUM
     Dosage: 20 MG, UNK
  4. DAKTARIN [MICONAZOLE NITRATE] [Concomitant]
     Dosage: UNK
     Route: 048
  5. AERIUS (DESLORATADINE) [Concomitant]
     Active Substance: DESLORATADINE
     Dosage: 5 MG, UNK
  6. MEDROL [Suspect]
     Active Substance: METHYLPREDNISOLONE
     Indication: RHEUMATIC DISORDER
     Dosage: 4 MG, UNK
     Route: 048
     Dates: start: 20161024, end: 20191228
  7. LACIPIL [Concomitant]
     Active Substance: LACIDIPINE
     Dosage: 4 MG, UNK

REACTIONS (3)
  - Cataract [Recovered/Resolved]
  - Hypoacusis [Not Recovered/Not Resolved]
  - Vertigo [Unknown]

NARRATIVE: CASE EVENT DATE: 2018
